FAERS Safety Report 6350393-3 (Version None)
Quarter: 2009Q3

REPORT INFORMATION
  Report Type: 
  Country: None (occurrence: None)
  Receive Date: 20090911
  Receipt Date: 20090622
  Transmission Date: 20100115
  Serious: No
  Sender: FDA-Public Use
  Company Number: US-ABBOTT-07P-163-0363787-00

PATIENT
  Sex: Female
  Weight: 79.45 kg

DRUGS (13)
  1. HUMIRA [Suspect]
     Indication: PSORIATIC ARTHROPATHY
     Route: 058
     Dates: start: 20070328
  2. HUMIRA [Suspect]
     Indication: PSORIASIS
  3. LEVOTHYROXINE SODIUM [Concomitant]
     Indication: HORMONE REPLACEMENT THERAPY
     Route: 048
  4. LOSARTAN POTASSIUM [Concomitant]
     Indication: HYPERTENSION
     Route: 048
  5. ATORVASTATIN CALCIUM [Concomitant]
     Indication: BLOOD CHOLESTEROL
     Route: 048
  6. CELECOXIB [Concomitant]
     Indication: OSTEOARTHRITIS
     Route: 048
  7. LANSOPRAZOLE [Concomitant]
     Indication: GASTROOESOPHAGEAL REFLUX DISEASE
     Route: 048
  8. FOLIC ACID [Concomitant]
     Indication: DRUG USE FOR UNKNOWN INDICATION
     Route: 048
  9. MULTI-VITAMINS [Concomitant]
     Indication: VITAMIN SUPPLEMENTATION
     Route: 048
  10. ACITRETIN [Concomitant]
     Indication: PSORIASIS
     Route: 048
  11. UREA 40% CREAM [Concomitant]
     Indication: PSORIASIS
     Dosage: APPLY TO AFFECTED AREAS QOD-ALTERNATE WITH HALOBETASOL
     Route: 061
  12. HALOBETASOL PROPIONATE 0.05% OINTMENT [Concomitant]
     Indication: PSORIASIS
     Route: 061
  13. DOVONEX 0.005% OINTMENT [Concomitant]
     Indication: PSORIASIS
     Route: 061

REACTIONS (1)
  - INCORRECT DOSE ADMINISTERED [None]
